FAERS Safety Report 18697588 (Version 1)
Quarter: 2021Q1

REPORT INFORMATION
  Report Type: Spontaneous
  Country: US (occurrence: US)
  Receive Date: 20210104
  Receipt Date: 20210104
  Transmission Date: 20210419
  Serious: Yes (Hospitalization)
  Sender: FDA-Public Use
  Company Number: US-MYLANLABS-2020M1106459

PATIENT
  Age: 37 Year
  Sex: Male

DRUGS (1)
  1. OMEPRAZOLE. [Suspect]
     Active Substance: OMEPRAZOLE
     Indication: CHRONIC GASTRITIS
     Dosage: 20 MILLIGRAM, QD
     Route: 065

REACTIONS (4)
  - Neuroendocrine tumour [Unknown]
  - Iron deficiency anaemia [Unknown]
  - Gastric neoplasm [Unknown]
  - Gastrointestinal haemorrhage [Recovering/Resolving]
